FAERS Safety Report 9416493 (Version 15)
Quarter: 2016Q2

REPORT INFORMATION
  Report Type: Report from Study
  Country: LB (occurrence: LB)
  Receive Date: 20130724
  Receipt Date: 20160503
  Transmission Date: 20160815
  Serious: Yes (Hospitalization, Other)
  Sender: FDA-Public Use
  Company Number: PHHY2013LB078135

PATIENT
  Age: 62 Year
  Sex: Female

DRUGS (9)
  1. JANUMET [Concomitant]
     Active Substance: METFORMIN HYDROCHLORIDE\SITAGLIPTIN PHOSPHATE
     Indication: PRODUCT USED FOR UNKNOWN INDICATION
     Dosage: 1 DF, Q12H (PER 12 HOURS)
     Route: 048
  2. ACTONEL [Concomitant]
     Active Substance: RISEDRONATE SODIUM
     Indication: PRODUCT USED FOR UNKNOWN INDICATION
     Dosage: 2 DF, QMO
     Route: 048
  3. PARIET [Suspect]
     Active Substance: RABEPRAZOLE SODIUM
     Indication: PRODUCT USED FOR UNKNOWN INDICATION
     Route: 065
  4. ATACAND [Concomitant]
     Active Substance: CANDESARTAN CILEXETIL
     Indication: PRODUCT USED FOR UNKNOWN INDICATION
     Dosage: 1 DF, QD
     Route: 048
  5. GLUCOVANCE [Concomitant]
     Active Substance: GLYBURIDE\METFORMIN HYDROCHLORIDE
     Indication: PRODUCT USED FOR UNKNOWN INDICATION
     Dosage: 1 DF, QD
     Route: 048
  6. NOOTROPIL [Concomitant]
     Active Substance: PIRACETAM
     Indication: PRODUCT USED FOR UNKNOWN INDICATION
     Dosage: 1 DF, Q8H
     Route: 048
  7. GLIVEC [Suspect]
     Active Substance: IMATINIB MESYLATE
     Indication: PRODUCT USED FOR UNKNOWN INDICATION
     Dosage: 400 MG, QD (PER DAY)
     Route: 048
     Dates: start: 201302
  8. PROFENID [Suspect]
     Active Substance: KETOPROFEN
     Indication: PRODUCT USED FOR UNKNOWN INDICATION
     Route: 065
  9. JANUMET [Concomitant]
     Active Substance: METFORMIN HYDROCHLORIDE\SITAGLIPTIN PHOSPHATE
     Dosage: 1 DF, QD
     Route: 048

REACTIONS (26)
  - Vision blurred [Not Recovered/Not Resolved]
  - Conjunctival haemorrhage [Recovering/Resolving]
  - Chest pain [Recovered/Resolved]
  - Osteoporosis [Not Recovered/Not Resolved]
  - Large intestine polyp [Unknown]
  - Fall [Unknown]
  - Fibroma [Recovered/Resolved]
  - Oliguria [Not Recovered/Not Resolved]
  - Discomfort [Recovered/Resolved]
  - Dyspnoea [Not Recovered/Not Resolved]
  - Gastritis [Unknown]
  - Ulcer [Unknown]
  - Urinary tract infection [Recovering/Resolving]
  - Abdominal pain upper [Not Recovered/Not Resolved]
  - Haematuria [Not Recovered/Not Resolved]
  - Nausea [Unknown]
  - Pelvic fracture [Not Recovered/Not Resolved]
  - Blindness [Unknown]
  - Diarrhoea [Recovering/Resolving]
  - Decreased appetite [Not Recovered/Not Resolved]
  - Urinary bladder polyp [Recovering/Resolving]
  - Diabetes mellitus [Not Recovered/Not Resolved]
  - Nephrolithiasis [Recovering/Resolving]
  - Hypoglycaemia [Recovered/Resolved]
  - Vomiting [Recovering/Resolving]
  - Cough [Not Recovered/Not Resolved]

NARRATIVE: CASE EVENT DATE: 20130815
